FAERS Safety Report 21425864 (Version 1)
Quarter: 2022Q4

REPORT INFORMATION
  Report Type: Report from Study
  Country: US (occurrence: US)
  Receive Date: 20221008
  Receipt Date: 20221008
  Transmission Date: 20230113
  Serious: No
  Sender: FDA-Public Use
  Company Number: US-ABBVIE-4136562

PATIENT
  Age: 19 Year
  Sex: Female
  Weight: 63.502 kg

DRUGS (9)
  1. RINVOQ [Suspect]
     Active Substance: UPADACITINIB
     Indication: Dermatitis atopic
     Route: 048
     Dates: start: 20220518
  2. Triamcinolon Oin 0.025% [Concomitant]
     Indication: Product used for unknown indication
  3. Dicyclomine CAP 10MG [Concomitant]
     Indication: Product used for unknown indication
  4. Azelastine DRO 0.05% [Concomitant]
     Indication: Product used for unknown indication
  5. Hydrocort CRE 2.5% [Concomitant]
     Indication: Product used for unknown indication
     Dosage: CREAM AS NEEDED
  6. TACROLIMUS [Concomitant]
     Active Substance: TACROLIMUS
     Indication: Product used for unknown indication
  7. Ipratropium SPR 0.03% [Concomitant]
     Indication: Product used for unknown indication
  8. Ondansetron TAB 4MG ODT [Concomitant]
     Indication: Product used for unknown indication
  9. Albuterol AER Hfa [Concomitant]
     Indication: Product used for unknown indication

REACTIONS (2)
  - Dermatitis atopic [Not Recovered/Not Resolved]
  - Skin discomfort [Not Recovered/Not Resolved]

NARRATIVE: CASE EVENT DATE: 20220901
